FAERS Safety Report 5630750-0 (Version None)
Quarter: 2008Q1

REPORT INFORMATION
  Report Type: 
  Country: None (occurrence: None)
  Receive Date: 20080212
  Receipt Date: 20080204
  Transmission Date: 20080703
  Serious: Yes (Death)
  Sender: FDA-Public Use
  Company Number: 2008-00921

PATIENT
  Age: 43 Year
  Sex: Female

DRUGS (11)
  1. GABAPENTIN [Suspect]
  2. ALBUTEROL [Suspect]
  3. SPIRONOLACTONE/HYDROCHLOROTHIAZIDE 25/25 (WATSON LABORATORIES)(SPIRONO [Suspect]
  4. FUROSEMIDE (WATSON LABORATORIES)(FUROSEMIDE) TABLET, 20MG [Suspect]
  5. NAPROXEN SODIUM EXTENDED RELEASE (WATSON LABORATORIES)(NAPROXEN SODIUM [Suspect]
  6. BUPROPION HYDROCHLORIDE [Suspect]
  7. FLUOXETINE [Suspect]
  8. QUETIAPINE FUMARATE [Suspect]
  9. BETA BLOCKING AGENTS() [Suspect]
  10. THYROID PREPARATION() [Suspect]
  11. COCAINE(COCAINE) [Suspect]

REACTIONS (1)
  - DEATH [None]
